FAERS Safety Report 9921786 (Version 1)
Quarter: 2014Q1

REPORT INFORMATION
  Report Type: Spontaneous
  Country: US (occurrence: None)
  Receive Date: 20140221
  Receipt Date: 20140221
  Transmission Date: 20141002
  Serious: No
  Sender: FDA-Public Use
  Company Number: None

PATIENT
  Sex: Female
  Weight: 80.29 kg

DRUGS (11)
  1. CRESTOR [Suspect]
     Indication: HYPERTENSION
     Dosage: 1 PILL?ONCE DAILY?BY MOUTH?2 MONTHS AGO ?I STOPPED
     Route: 048
  2. CRESTOR [Suspect]
     Indication: BLOOD CHOLESTEROL INCREASED
     Dosage: 1 PILL?ONCE DAILY?BY MOUTH?2 MONTHS AGO ?I STOPPED
     Route: 048
  3. METOPROLOL [Suspect]
     Indication: HYPERTENSION
     Dosage: 1 PILL?ONCE DAILY?BY MOUTH?2 MONTHS AGO ?I STOPPED
     Route: 048
  4. METOPROLOL [Suspect]
     Indication: BLOOD CHOLESTEROL INCREASED
     Dosage: 1 PILL?ONCE DAILY?BY MOUTH?2 MONTHS AGO ?I STOPPED
     Route: 048
  5. LISINOPRIL [Suspect]
     Indication: HYPERTENSION
     Dosage: 1 PILL?ONCE DAILY?BY MOUTH?2 MONTHS AGO ?I STOPPED
     Route: 048
  6. LISINOPRIL [Suspect]
     Indication: BLOOD CHOLESTEROL INCREASED
     Dosage: 1 PILL?ONCE DAILY?BY MOUTH?2 MONTHS AGO ?I STOPPED
     Route: 048
  7. TERAZOSIN [Concomitant]
  8. OMEGA3-6-9 [Concomitant]
  9. AMIO ACIDS COMPLEX [Concomitant]
  10. VIBRID [Concomitant]
  11. A VITAMIN COMPLEX (CENTRUM) [Concomitant]

REACTIONS (1)
  - Nightmare [None]
